FAERS Safety Report 5679607-X (Version None)
Quarter: 2008Q1

REPORT INFORMATION
  Report Type: 
  Country: None (occurrence: None)
  Receive Date: 20080321
  Receipt Date: 20080307
  Transmission Date: 20080703
  Serious: Yes (Death, Other)
  Sender: FDA-Public Use
  Company Number: A-JP2007-14687

PATIENT
  Age: 42 Year
  Sex: Female
  Weight: 41 kg

DRUGS (9)
  1. TRACLEER [Suspect]
     Indication: PULMONARY HYPERTENSION
     Dosage: 31.25 MG, QD, ORAL; 62.5 MG, BID, ORAL; 187.5 MG,QD, ORAL; 125 MG, BID, ORAL; 62.5 MG, BID, ORAL
     Route: 048
     Dates: start: 20051205, end: 20051212
  2. TRACLEER [Suspect]
     Indication: PULMONARY HYPERTENSION
     Dosage: 31.25 MG, QD, ORAL; 62.5 MG, BID, ORAL; 187.5 MG,QD, ORAL; 125 MG, BID, ORAL; 62.5 MG, BID, ORAL
     Route: 048
     Dates: start: 20051213, end: 20060309
  3. TRACLEER [Suspect]
     Indication: PULMONARY HYPERTENSION
     Dosage: 31.25 MG, QD, ORAL; 62.5 MG, BID, ORAL; 187.5 MG,QD, ORAL; 125 MG, BID, ORAL; 62.5 MG, BID, ORAL
     Route: 048
     Dates: start: 20060705, end: 20080101
  4. TRACLEER [Suspect]
     Indication: PULMONARY HYPERTENSION
     Dosage: 31.25 MG, QD, ORAL; 62.5 MG, BID, ORAL; 187.5 MG,QD, ORAL; 125 MG, BID, ORAL; 62.5 MG, BID, ORAL
     Route: 048
     Dates: start: 20080102, end: 20080101
  5. EPOPROSTENOL SODIUM [Concomitant]
  6. FUROSEMIDE [Concomitant]
  7. DIGOXIN [Concomitant]
  8. SILDENAFIL CITRATE [Concomitant]
  9. OXYGEN (OXYGEN) [Concomitant]

REACTIONS (5)
  - AUTOIMMUNE THROMBOCYTOPENIA [None]
  - ENDOMETRIAL HYPERPLASIA [None]
  - GENITAL HAEMORRHAGE [None]
  - HYPERTHYROIDISM [None]
  - VAGINAL HAEMORRHAGE [None]
